FAERS Safety Report 12717169 (Version 1)
Quarter: 2016Q3

REPORT INFORMATION
  Report Type: Spontaneous
  Country: US (occurrence: US)
  Receive Date: 20160906
  Receipt Date: 20160906
  Transmission Date: 20161109
  Serious: No
  Sender: FDA-Public Use
  Company Number: PHEH2016US009822

PATIENT
  Sex: Female

DRUGS (1)
  1. TASIGNA [Suspect]
     Active Substance: NILOTINIB
     Indication: CHRONIC MYELOID LEUKAEMIA
     Dosage: 400 MG, BID
     Route: 048
     Dates: start: 20141004

REACTIONS (6)
  - Mouth ulceration [Unknown]
  - Gastrointestinal disorder [Unknown]
  - Pharyngitis streptococcal [Unknown]
  - Dysphagia [Unknown]
  - Pharyngeal ulceration [Unknown]
  - Pyrexia [Unknown]
